FAERS Safety Report 6955364-1 (Version None)
Quarter: 2010Q3

REPORT INFORMATION
  Report Type: 
  Country: None (occurrence: None)
  Receive Date: 20100830
  Receipt Date: 20100817
  Transmission Date: 20110219
  Serious: Yes (Other)
  Sender: FDA-Public Use
  Company Number: GB-ELI_LILLY_AND_COMPANY-GB201008006154

PATIENT
  Age: 76 Year
  Sex: Male
  Weight: 72 kg

DRUGS (3)
  1. GEMZAR [Suspect]
     Indication: PANCREATIC CARCINOMA
     Dosage: 1900 MG, UNKNOWN
     Route: 042
     Dates: start: 20100712, end: 20100712
  2. CREON [Concomitant]
     Indication: PANCREATECTOMY
     Dosage: 40000 IU, UNKNOWN
     Route: 048
  3. ISTIN [Concomitant]
     Dosage: 5 MG, UNKNOWN
     Route: 048

REACTIONS (4)
  - ARRHYTHMIA [None]
  - ARTHRALGIA [None]
  - GAIT DISTURBANCE [None]
  - MYALGIA [None]
